FAERS Safety Report 11942872 (Version 1)
Quarter: 2016Q1

REPORT INFORMATION
  Report Type: Spontaneous
  Country: US (occurrence: US)
  Receive Date: 20160125
  Receipt Date: 20160125
  Transmission Date: 20160526
  Serious: No
  Sender: FDA-Public Use
  Company Number: US-UNITED THERAPEUTICS-UNT-2015-007779

PATIENT
  Sex: Male
  Weight: 68.27 kg

DRUGS (4)
  1. COUMADIN [Concomitant]
     Active Substance: WARFARIN SODIUM
     Indication: PRODUCT USED FOR UNKNOWN INDICATION
  2. LETAIRIS [Concomitant]
     Active Substance: AMBRISENTAN
     Indication: PRODUCT USED FOR UNKNOWN INDICATION
  3. REVATIO [Concomitant]
     Active Substance: SILDENAFIL CITRATE
     Indication: PRODUCT USED FOR UNKNOWN INDICATION
  4. REMODULIN [Suspect]
     Active Substance: TREPROSTINIL
     Indication: PULMONARY ARTERIAL HYPERTENSION
     Dosage: 0.037 ?G/KG/MIN, CONTINUING
     Route: 058
     Dates: start: 20020614

REACTIONS (7)
  - Device leakage [Unknown]
  - Infusion site discharge [Unknown]
  - Device issue [Unknown]
  - Hyperhidrosis [Unknown]
  - Drug dose omission [Unknown]
  - Infusion site haemorrhage [Unknown]
  - Flushing [Unknown]
